FAERS Safety Report 9700094 (Version 1)
Quarter: 2013Q4

REPORT INFORMATION
  Report Type: Spontaneous
  Country: FR (occurrence: FR)
  Receive Date: 20131121
  Receipt Date: 20131121
  Transmission Date: 20140711
  Serious: Yes (Hospitalization)
  Sender: FDA-Public Use
  Company Number: PHHY2013FR131865

PATIENT
  Age: 63 Year
  Sex: Male

DRUGS (3)
  1. PACLITAXEL EBEWE [Suspect]
     Indication: PRODUCT USED FOR UNKNOWN INDICATION
     Dosage: 159 MG, UNK
     Route: 042
     Dates: start: 20110615
  2. HERCEPTIN [Suspect]
     Indication: PRODUCT USED FOR UNKNOWN INDICATION
     Dosage: 4 MG/KG, UNK
     Route: 042
     Dates: start: 20110615, end: 20110623
  3. HERCEPTIN [Suspect]
     Dosage: 6 MG/KG, UNK
     Route: 042
     Dates: start: 20110623, end: 20110804

REACTIONS (4)
  - Rhabdomyolysis [Unknown]
  - Renal impairment [Unknown]
  - Generalised oedema [Unknown]
  - Acute respiratory failure [Unknown]
